FAERS Safety Report 4447562-6 (Version None)
Quarter: 2004Q3

REPORT INFORMATION
  Report Type: 
  Country: None (occurrence: None)
  Receive Date: 20040812
  Receipt Date: 20040707
  Transmission Date: 20050211
  Serious: No
  Sender: FDA-Public Use
  Company Number: USA040771970

PATIENT
  Age: 41 Year
  Sex: Male
  Weight: 64 kg

DRUGS (3)
  1. CIALIS [Suspect]
     Dosage: 5 MG
     Dates: start: 20040623
  2. SOLU-MEDROL [Concomitant]
  3. ZANAFLEX [Concomitant]

REACTIONS (1)
  - DRUG INEFFECTIVE [None]
